FAERS Safety Report 5874996-5 (Version None)
Quarter: 2008Q3

REPORT INFORMATION
  Report Type: 
  Country: None (occurrence: None)
  Receive Date: 20080908
  Receipt Date: 20080908
  Transmission Date: 20090109
  Serious: Yes (Disabling, Other)
  Sender: FDA-Public Use
  Company Number: None

PATIENT
  Age: 33 Year
  Sex: Female
  Weight: 65.7716 kg

DRUGS (1)
  1. CIPROFLAXIN DO NOT REMEMBER [Suspect]
     Indication: GASTRIC DISORDER
     Dosage: 250 MG 3 X PER DAY PO
     Route: 048
     Dates: start: 20071004, end: 20071006

REACTIONS (3)
  - ARTHRALGIA [None]
  - TENDON PAIN [None]
  - WHEELCHAIR USER [None]
